FAERS Safety Report 6383446-4 (Version None)
Quarter: 2009Q4

REPORT INFORMATION
  Report Type: 
  Country: None (occurrence: None)
  Receive Date: 20091001
  Receipt Date: 20090921
  Transmission Date: 20100525
  Serious: Yes (Other)
  Sender: FDA-Public Use
  Company Number: CA-JNJFOC-20090302275

PATIENT
  Sex: Female
  Weight: 111.5 kg

DRUGS (14)
  1. REMICADE [Suspect]
     Indication: ANKYLOSING SPONDYLITIS
     Route: 042
     Dates: start: 20080228, end: 20090217
  2. YASMIN [Concomitant]
     Indication: DYSMENORRHOEA
  3. NORVASC [Concomitant]
  4. AVAPRO [Concomitant]
  5. OXYCET [Concomitant]
  6. HYDROZIDE GEL TABLETS [Concomitant]
  7. PANTOPRAZOLE [Concomitant]
  8. DOMPERIDONE [Concomitant]
  9. KETOPROFEN [Concomitant]
  10. PROCHLORPERAZINE [Concomitant]
  11. BACLOFEN [Concomitant]
  12. BENADRYL [Concomitant]
  13. ETHINYL ESTRADIOL AND NORETHINDRONE [Concomitant]
     Indication: HOT FLUSH
  14. GLICLAZIDE [Concomitant]

REACTIONS (3)
  - PRURITUS [None]
  - RECTOCELE [None]
  - RENAL CYST [None]
